FAERS Safety Report 15389864 (Version 3)
Quarter: 2018Q4

REPORT INFORMATION
  Report Type: Report from Study
  Country: IT (occurrence: IT)
  Receive Date: 20180917
  Receipt Date: 20181211
  Transmission Date: 20190204
  Serious: Yes (Hospitalization)
  Sender: FDA-Public Use
  Company Number: IT-BAUSCH-BL-2018-025377

PATIENT
  Age: 65 Year
  Sex: Female

DRUGS (3)
  1. RIFAXIMIN. [Suspect]
     Active Substance: RIFAXIMIN
     Indication: ANTIBIOTIC THERAPY
     Route: 048
     Dates: start: 20180814, end: 20180817
  2. SINTROM [Suspect]
     Active Substance: ACENOCOUMAROL
     Indication: ATRIAL FIBRILLATION
     Dosage: AS NECESSARY
     Route: 048
  3. RIFAXIMIN. [Suspect]
     Active Substance: RIFAXIMIN
     Route: 048
     Dates: start: 2018

REACTIONS (3)
  - Rectal haemorrhage [Recovered/Resolved]
  - Abdominal pain [Recovered/Resolved]
  - Diarrhoea [Recovered/Resolved]

NARRATIVE: CASE EVENT DATE: 20180817
